FAERS Safety Report 20559719 (Version 1)
Quarter: 2022Q1

REPORT INFORMATION
  Report Type: Spontaneous
  Country: US (occurrence: None)
  Receive Date: 20220304
  Receipt Date: 20220304
  Transmission Date: 20220423
  Serious: No
  Sender: FDA-Public Use
  Company Number: None

PATIENT
  Age: 39 Year
  Sex: Female

DRUGS (1)
  1. AMBRISENTAN [Suspect]
     Active Substance: AMBRISENTAN
     Indication: Pulmonary arterial hypertension
     Dosage: 10MG TABLET DAILY ORAL?
     Route: 048
     Dates: start: 20220114

REACTIONS (2)
  - Therapy interrupted [None]
  - Asthma [None]

NARRATIVE: CASE EVENT DATE: 20220304
